FAERS Safety Report 6203313-6 (Version None)
Quarter: 2009Q2

REPORT INFORMATION
  Report Type: 
  Country: None (occurrence: None)
  Receive Date: 20090527
  Receipt Date: 20090525
  Transmission Date: 20091009
  Serious: Yes (Death, Other)
  Sender: FDA-Public Use
  Company Number: PHHY2009NL20165

PATIENT
  Age: 50 Year
  Sex: Female

DRUGS (10)
  1. CYCLOSPORINE [Suspect]
     Indication: RENAL TRANSPLANT
     Dosage: 10 MG/DAY
  2. CYCLOSPORINE [Suspect]
     Indication: IMMUNOSUPPRESSION
  3. PREDNISOLONE [Suspect]
     Indication: RENAL TRANSPLANT
     Dosage: 10 MG/DAY
  4. PREDNISOLONE [Suspect]
     Indication: IMMUNOSUPPRESSION
  5. MYCOPHENOLATE MOFETIL [Suspect]
     Indication: RENAL TRANSPLANT
  6. MYCOPHENOLATE MOFETIL [Suspect]
     Indication: IMMUNOSUPPRESSION
  7. METHYLPREDNISOLONE [Concomitant]
     Indication: TRANSPLANT REJECTION
     Dosage: 1 G/DAY
  8. METHYLPREDNISOLONE [Concomitant]
     Dosage: 1 G/DAY
  9. ANTI-THYMOCYTE GLOBULIN NOS [Concomitant]
     Indication: TRANSPLANT REJECTION
  10. IMMUNOGLOBULINS [Concomitant]
     Indication: TRANSPLANT REJECTION
     Route: 042

REACTIONS (15)
  - BLOOD CREATININE INCREASED [None]
  - BRAIN OEDEMA [None]
  - CENTRAL NERVOUS SYSTEM INFLAMMATION [None]
  - CEREBRAL TOXOPLASMOSIS [None]
  - CONFUSIONAL STATE [None]
  - CSF LYMPHOCYTE COUNT INCREASED [None]
  - CSF PROTEIN INCREASED [None]
  - LEUKOPENIA [None]
  - LIPASE INCREASED [None]
  - LYMPHOPENIA [None]
  - PYREXIA [None]
  - RHABDOMYOLYSIS [None]
  - THROMBOCYTOPENIA [None]
  - TOXOPLASMOSIS [None]
  - TRANSPLANT REJECTION [None]
